FAERS Safety Report 23396040 (Version 2)
Quarter: 2025Q3

REPORT INFORMATION
  Report Type: Spontaneous
  Country: EU (occurrence: EU)
  Receive Date: 20240112
  Receipt Date: 20250702
  Transmission Date: 20251021
  Serious: Yes (Other)
  Sender: AUROBINDO
  Company Number: EU-ELI_LILLY_AND_COMPANY-IT202312015494

PATIENT
  Sex: Female

DRUGS (4)
  1. PEMETREXED [Suspect]
     Active Substance: PEMETREXED
     Indication: Lung adenocarcinoma
     Route: 065
  2. CISPLATIN [Suspect]
     Active Substance: CISPLATIN
     Indication: Lung adenocarcinoma
     Route: 065
  3. SELPERCATINIB [Suspect]
     Active Substance: SELPERCATINIB
     Indication: Lung adenocarcinoma
     Dosage: 320 MILLIGRAM, ONCE A DAY (160 MG, BID)
     Route: 048
  4. SELPERCATINIB [Suspect]
     Active Substance: SELPERCATINIB
     Dosage: 240 MILLIGRAM, ONCE A DAY (120 MG, BID)
     Route: 048

REACTIONS (5)
  - Nephropathy toxic [Unknown]
  - Hypertension [Unknown]
  - Malignant neoplasm progression [Unknown]
  - Arthralgia [Recovered/Resolved]
  - Therapy partial responder [Unknown]

NARRATIVE: CASE EVENT DATE: 20220501
